FAERS Safety Report 26102606 (Version 1)
Quarter: 2025Q4

REPORT INFORMATION
  Report Type: Spontaneous
  Country: TW (occurrence: TW)
  Receive Date: 20251128
  Receipt Date: 20251128
  Transmission Date: 20260118
  Serious: Yes (Other)
  Sender: MERCK SHARP & DOHME LLC
  Company Number: TW-009507513-2354807

PATIENT
  Age: 81 Year
  Sex: Male
  Weight: 47 kg

DRUGS (5)
  1. SUGAMMADEX [Suspect]
     Active Substance: SUGAMMADEX
     Indication: Neuromuscular blockade reversal
     Dosage: TIME INTERVAL: TOTAL
  2. PROPOFOL [Concomitant]
     Active Substance: PROPOFOL
     Indication: Maintenance of anaesthesia
     Dosage: EFFECT-SITE CONCENTRATION OF 1.8 MCG ML-1
  3. REMIFENTANIL [Concomitant]
     Active Substance: REMIFENTANIL
     Indication: Maintenance of anaesthesia
     Dosage: EFFECT-SITE CONCENTRATION OF 0.5-3.0 NG ML-1
  4. LIDOCAINE [Concomitant]
     Active Substance: LIDOCAINE
     Indication: Transversus abdominis plane block
     Dosage: MIXTURE OF 15 ML OF 2%
  5. ROPIVACAINE [Concomitant]
     Active Substance: ROPIVACAINE
     Indication: Transversus abdominis plane block
     Dosage: MIXTURE 15 ML OF 1%

REACTIONS (3)
  - Shock [Recovering/Resolving]
  - Bradycardia [Recovering/Resolving]
  - Product use in unapproved indication [Unknown]
